FAERS Safety Report 11753289 (Version 1)
Quarter: 2015Q4

REPORT INFORMATION
  Report Type: Spontaneous
  Country: US (occurrence: US)
  Receive Date: 20151119
  Receipt Date: 20151119
  Transmission Date: 20160304
  Serious: Yes (Other)
  Sender: FDA-Public Use
  Company Number: PHEH2015US022612

PATIENT
  Age: 57 Year
  Sex: Male

DRUGS (6)
  1. GLEEVEC [Suspect]
     Active Substance: IMATINIB MESYLATE
     Indication: CHORDOMA
  2. ZOFRAN [Concomitant]
     Active Substance: ONDANSETRON HYDROCHLORIDE
     Indication: NAUSEA
     Dosage: 2 DF, QD
     Route: 048
  3. ADVIL [Concomitant]
     Active Substance: IBUPROFEN
     Indication: PRODUCT USED FOR UNKNOWN INDICATION
     Dosage: 400 MG, BID
     Route: 048
  4. XANAX [Suspect]
     Active Substance: ALPRAZOLAM
     Indication: ANXIETY
     Dosage: 1 MG, AT NIGHT PRN
     Route: 048
  5. BENICAR HCT [Concomitant]
     Active Substance: HYDROCHLOROTHIAZIDE\OLMESARTAN MEDOXOMIL
     Indication: PRODUCT USED FOR UNKNOWN INDICATION
     Dosage: 1 DF, QD
     Route: 048
  6. GLEEVEC [Suspect]
     Active Substance: IMATINIB MESYLATE
     Indication: LYMPHADENOPATHY
     Dosage: 2 DF, BID
     Route: 048
     Dates: start: 20150605

REACTIONS (10)
  - Scrotal oedema [Unknown]
  - Off label use [Unknown]
  - Lymphadenopathy [Unknown]
  - Fractured sacrum [Unknown]
  - Anxiety [Unknown]
  - Sleep disorder [Unknown]
  - Chordoma [Unknown]
  - Malignant neoplasm progression [Unknown]
  - Agitation [Unknown]
  - Lymph node pain [Unknown]

NARRATIVE: CASE EVENT DATE: 20150611
